FAERS Safety Report 6453895-4 (Version None)
Quarter: 2009Q4

REPORT INFORMATION
  Report Type: 
  Country: None (occurrence: None)
  Receive Date: 20091116
  Receipt Date: 20091021
  Transmission Date: 20100525
  Serious: Yes (Hospitalization)
  Sender: FDA-Public Use
  Company Number: WAES 0910USA02623

PATIENT
  Age: 48 Year
  Sex: Male

DRUGS (4)
  1. TAB RALTEGRAVIR POTASSIUM [Suspect]
     Indication: HIV INFECTION
     Dosage: 600 MG BID PO
     Route: 048
  2. TENOFOVIR DISOPROXIL FUMARATE [Suspect]
     Indication: HIV INFECTION
     Dosage: 300 MG DAILY
  3. LAMIVUDINE [Suspect]
     Indication: HIV INFECTION
     Dosage: 300 MG DAILY
  4. PLACEBO (UNSPECIFIED) [Suspect]
     Dosage: PO
     Route: 048

REACTIONS (7)
  - BACK PAIN [None]
  - BRONCHITIS [None]
  - DEPRESSION [None]
  - HAEMOGLOBIN DECREASED [None]
  - HYPERTENSION [None]
  - OSTEONECROSIS [None]
  - OSTEOPOROSIS [None]
